FAERS Safety Report 15778915 (Version 2)
Quarter: 2019Q1

REPORT INFORMATION
  Report Type: Spontaneous
  Country: FR (occurrence: FR)
  Receive Date: 20190101
  Receipt Date: 20190211
  Transmission Date: 20190417
  Serious: Yes (Death, Life-Threatening, Hospitalization, Other)
  Sender: FDA-Public Use
  Company Number: FR-ACCORD-098942

PATIENT
  Age: 71 Year
  Sex: Male

DRUGS (3)
  1. CLOZAPINE. [Suspect]
     Active Substance: CLOZAPINE
     Indication: PRODUCT USED FOR UNKNOWN INDICATION
     Dosage: 100 MG/DAY
     Route: 065
  2. FUROSEMIDE. [Suspect]
     Active Substance: FUROSEMIDE
     Indication: PRODUCT USED FOR UNKNOWN INDICATION
     Dosage: 20 MG/DAY
     Route: 048
  3. LOXAPAC [Suspect]
     Active Substance: LOXAPINE
     Indication: SCHIZOPHRENIA
     Route: 048

REACTIONS (16)
  - Hypotension [Fatal]
  - Hypoxia [Fatal]
  - Confusional state [Not Recovered/Not Resolved]
  - Metabolic acidosis [Fatal]
  - Rhabdomyolysis [Fatal]
  - Cardio-respiratory arrest [Fatal]
  - Multiple organ dysfunction syndrome [Fatal]
  - Brain injury [Fatal]
  - Neuroleptic malignant syndrome [Fatal]
  - Pneumonia [Fatal]
  - Muscle rigidity [Fatal]
  - Dehydration [Fatal]
  - Hyperthermia [Fatal]
  - Acute kidney injury [Fatal]
  - Depressed level of consciousness [Fatal]
  - Haemodynamic instability [Fatal]

NARRATIVE: CASE EVENT DATE: 20150722
